FAERS Safety Report 7007054-7 (Version None)
Quarter: 2010Q3

REPORT INFORMATION
  Report Type: 
  Country: None (occurrence: None)
  Receive Date: 20100922
  Receipt Date: 20100914
  Transmission Date: 20110219
  Serious: Yes (Death, Other)
  Sender: FDA-Public Use
  Company Number: PHHY2010GR60640

PATIENT
  Age: 42 Year
  Sex: Female

DRUGS (8)
  1. CYCLOSPORINE [Suspect]
     Indication: CORD BLOOD TRANSPLANT THERAPY
     Dosage: UNK
  2. MYCOPHENOLATE MOFETIL [Suspect]
     Indication: CORD BLOOD TRANSPLANT THERAPY
  3. BUSULFAN [Concomitant]
     Indication: CORD BLOOD TRANSPLANT THERAPY
     Dosage: UNK
  4. FLUDARABINE [Concomitant]
     Indication: CORD BLOOD TRANSPLANT THERAPY
  5. ACYCLOVIR [Concomitant]
     Dosage: UNK
  6. FLUCONAZOLE [Concomitant]
     Dosage: UNK
  7. PENTAMIDINE ISETHIONATE [Concomitant]
  8. METHYLPREDNISOLONE [Concomitant]
     Dosage: 1 MG/KG

REACTIONS (13)
  - ABDOMINAL TENDERNESS [None]
  - ACUTE GRAFT VERSUS HOST DISEASE IN SKIN [None]
  - BLOOD LACTATE DEHYDROGENASE INCREASED [None]
  - BONE MARROW FAILURE [None]
  - HEPATIC FUNCTION ABNORMAL [None]
  - HEPATOMEGALY [None]
  - LUNG DISORDER [None]
  - PANCYTOPENIA [None]
  - PYREXIA [None]
  - RALES [None]
  - RASH MACULO-PAPULAR [None]
  - RESPIRATORY DISORDER [None]
  - TOXOPLASMOSIS [None]
